FAERS Safety Report 23621335 (Version 1)
Quarter: 2024Q1

REPORT INFORMATION
  Report Type: Report from Study
  Country: US (occurrence: US)
  Receive Date: 20240312
  Receipt Date: 20240312
  Transmission Date: 20240409
  Serious: Yes (Other)
  Sender: FDA-Public Use
  Company Number: US-MYLANLABS-2024M1021185

PATIENT
  Weight: 127.01 kg

DRUGS (1)
  1. GLATIRAMER ACETATE [Suspect]
     Active Substance: GLATIRAMER ACETATE
     Dosage: 40 MILLIGRAM, 3XW
     Route: 065

REACTIONS (4)
  - Atrial fibrillation [Unknown]
  - Multiple sclerosis relapse [Unknown]
  - Pain [Unknown]
  - Drug ineffective [Unknown]
